FAERS Safety Report 22520174 (Version 1)
Quarter: 2023Q2

REPORT INFORMATION
  Report Type: Spontaneous
  Country: US (occurrence: None)
  Receive Date: 20230602
  Receipt Date: 20230602
  Transmission Date: 20230722
  Serious: Yes (Disabling)
  Sender: FDA-Public Use
  Company Number: None

PATIENT
  Age: 61 Year
  Sex: Female
  Weight: 67.5 kg

DRUGS (9)
  1. ROSUVASTATIN [Suspect]
     Active Substance: ROSUVASTATIN
     Indication: Blood cholesterol increased
     Dosage: DAILY ORAL?
     Route: 048
     Dates: start: 20230215, end: 20230508
  2. LEVOTHYROXINE [Concomitant]
     Active Substance: LEVOTHYROXINE
  3. women^s multivitamin [Concomitant]
  4. CALCIUM [Concomitant]
     Active Substance: CALCIUM
  5. VITAMIN D3 [Concomitant]
     Active Substance: CHOLECALCIFEROL
  6. PROBIOTICS NOS [Concomitant]
     Active Substance: PROBIOTICS NOS
  7. HERBALS\TURMERIC [Concomitant]
     Active Substance: HERBALS\TURMERIC
  8. super b-complex [Concomitant]
  9. MELATONIN [Concomitant]
     Active Substance: MELATONIN

REACTIONS (4)
  - Inappropriate schedule of product administration [None]
  - Urine output increased [None]
  - Bladder discomfort [None]
  - Therapy cessation [None]

NARRATIVE: CASE EVENT DATE: 20230501
